FAERS Safety Report 9608266 (Version 1)
Quarter: 2013Q4

REPORT INFORMATION
  Report Type: Spontaneous
  Country: US (occurrence: US)
  Receive Date: 20131009
  Receipt Date: 20131009
  Transmission Date: 20140711
  Serious: No
  Sender: FDA-Public Use
  Company Number: US-PFIZER INC-2013287624

PATIENT
  Age: 76 Year
  Sex: Female

DRUGS (10)
  1. LYRICA [Suspect]
     Dosage: UNK
  2. CLINDAMYCIN HCL [Suspect]
     Dosage: UNK
  3. SYMBYAX [Suspect]
     Dosage: UNK
  4. BYSTOLIC [Suspect]
     Dosage: UNK
  5. TOPRAL [Suspect]
     Dosage: UNK
  6. LOTENSIN [Suspect]
     Dosage: UNK
  7. INDOCIN [Suspect]
     Dosage: UNK
  8. BACTRIM DS [Suspect]
     Dosage: UNK
  9. MOBIC [Suspect]
     Dosage: UNK
  10. LEVAQUIN [Suspect]
     Dosage: UNK

REACTIONS (1)
  - Drug hypersensitivity [Unknown]
